FAERS Safety Report 6512594-0 (Version None)
Quarter: 2009Q4

REPORT INFORMATION
  Report Type: 
  Country: None (occurrence: None)
  Receive Date: 20091222
  Receipt Date: 20091217
  Transmission Date: 20100525
  Serious: Yes (Death, Other)
  Sender: FDA-Public Use
  Company Number: US-BAXTER-2009BH019524

PATIENT
  Sex: Male

DRUGS (4)
  1. HEPARIN SODIUM INJECTION [Suspect]
     Indication: DRUG USE FOR UNKNOWN INDICATION
     Route: 058
     Dates: start: 20071214, end: 20071217
  2. HEPARIN SODIUM INJECTION [Suspect]
     Route: 040
     Dates: start: 20071217, end: 20071217
  3. HEPARIN SODIUM 1,000 UNITS AND SODIUM CHLORIDE 0.9% [Suspect]
     Indication: DRUG USE FOR UNKNOWN INDICATION
     Route: 041
     Dates: start: 20071217, end: 20071218
  4. HEPARIN SODIUM 1,000 UNITS AND SODIUM CHLORIDE 0.9% [Suspect]
     Route: 041
     Dates: start: 20071218, end: 20071220

REACTIONS (5)
  - CEREBRAL INFARCTION [None]
  - DEATH [None]
  - EMBOLIC STROKE [None]
  - HYPERSENSITIVITY [None]
  - HYPOTENSION [None]
